FAERS Safety Report 7599180-9 (Version None)
Quarter: 2011Q3

REPORT INFORMATION
  Report Type: 
  Country: None (occurrence: None)
  Receive Date: 20110711
  Receipt Date: 20110624
  Transmission Date: 20111222
  Serious: Yes (Other)
  Sender: FDA-Public Use
  Company Number: US-BAYER-201040712NA

PATIENT
  Age: 62 Year
  Sex: Female
  Weight: 59 kg

DRUGS (17)
  1. VANCOMYCIN [Concomitant]
     Dosage: 1 G, UNK
     Route: 042
     Dates: start: 20060501
  2. TRASYLOL [Suspect]
     Indication: AORTIC VALVE REPLACEMENT
  3. HYDROCHLOROTHIAZIDE [Concomitant]
     Indication: HYPERTENSION
     Dosage: UNK
     Route: 048
     Dates: start: 20060101
  4. AMIODARONE HCL [Concomitant]
     Dosage: 400 MG, BID
     Route: 048
     Dates: start: 20060428
  5. FENTANYL [Concomitant]
     Dosage: UNK
  6. HEPARIN [Concomitant]
     Dosage: UNK
     Dates: start: 20060501
  7. LEVOPHED [Concomitant]
     Dosage: 8 MG, UNK
     Route: 042
     Dates: start: 20060501
  8. BLOOD AND RELATED PRODUCTS [Concomitant]
     Dosage: 1 U, UNK
     Route: 042
  9. TRASYLOL [Suspect]
     Indication: CORONARY ARTERY BYPASS
     Dosage: UNK 200CC TWICE
     Route: 042
     Dates: start: 20060501, end: 20060501
  10. VALIUM [Concomitant]
     Indication: ANXIETY
     Dosage: 5MG 3 TIMES PER DAY AS NEEDED
     Route: 048
     Dates: start: 20060427
  11. QUINAPRIL HCL [Concomitant]
     Dosage: 10 MG, QD
     Dates: start: 20060427
  12. ACETAMINOPHEN [Concomitant]
     Indication: PAIN PROPHYLAXIS
     Dosage: 325 MG OR 650 MG EVERY 4 HOURS AS NEEDED
     Route: 048
     Dates: start: 20060427
  13. LEVAQUIN [Concomitant]
  14. VANCOMYCIN [Concomitant]
     Dosage: 1 G, UNK
     Route: 042
     Dates: start: 20060430, end: 20060430
  15. INSULIN [Concomitant]
  16. METOPROLOL TARTRATE [Concomitant]
     Indication: HYPERTENSION
     Dosage: UNK
     Route: 048
     Dates: start: 20060101
  17. VERAPAMIL SLOW RELEASE [Concomitant]
     Dosage: 180 MG, QD
     Dates: start: 20060427

REACTIONS (14)
  - RENAL INJURY [None]
  - MYOCARDIAL INFARCTION [None]
  - DISABILITY [None]
  - FEAR [None]
  - RENAL IMPAIRMENT [None]
  - EMOTIONAL DISTRESS [None]
  - ANXIETY [None]
  - PAIN [None]
  - RENAL FAILURE [None]
  - STRESS [None]
  - INJURY [None]
  - MULTI-ORGAN FAILURE [None]
  - LUNG DISORDER [None]
  - UNEVALUABLE EVENT [None]
